FAERS Safety Report 5398968-2 (Version None)
Quarter: 2007Q3

REPORT INFORMATION
  Report Type: 
  Country: None (occurrence: None)
  Receive Date: 20070727
  Receipt Date: 20070717
  Transmission Date: 20080115
  Serious: Yes (Other)
  Sender: FDA-Public Use
  Company Number: CA-JNJFOC-20070703888

PATIENT
  Sex: Female
  Weight: 57.5 kg

DRUGS (3)
  1. REMICADE [Suspect]
     Route: 042
  2. REMICADE [Suspect]
     Indication: COLITIS ULCERATIVE
     Route: 042
  3. IRON [Suspect]
     Indication: DRUG USE FOR UNKNOWN INDICATION

REACTIONS (6)
  - ASTHENIA [None]
  - DIARRHOEA [None]
  - GASTROINTESTINAL PAIN [None]
  - INSOMNIA [None]
  - INTESTINAL HAEMORRHAGE [None]
  - WEIGHT DECREASED [None]
